FAERS Safety Report 4691085-6 (Version None)
Quarter: 2005Q2

REPORT INFORMATION
  Report Type: 
  Country: None (occurrence: None)
  Receive Date: 20050610
  Receipt Date: 20050602
  Transmission Date: 20051028
  Serious: Yes (Life-Threatening, Hospitalization)
  Sender: FDA-Public Use
  Company Number: FRP05000433

PATIENT
  Age: 52 Year
  Sex: Male

DRUGS (6)
  1. DIDRONEL [Suspect]
     Indication: OSTEOPOROSIS
     Dosage: ORAL
     Route: 048
     Dates: start: 20011102, end: 20031103
  2. STAGID             (METFORMIN EMBONATE) [Concomitant]
  3. COVERSYL            (PERINDOPRIL) [Concomitant]
  4. PREDNISOLONE [Concomitant]
  5. LASIX [Concomitant]
  6. FLIXOTIDE DISKUS                  (FLUTICASONE PROPIONATE) [Concomitant]

REACTIONS (3)
  - ASEPTIC NECROSIS BONE [None]
  - ASPERGILLOSIS [None]
  - RENAL FAILURE [None]
